FAERS Safety Report 24769911 (Version 1)
Quarter: 2024Q4

REPORT INFORMATION
  Report Type: Report from Study
  Country: US (occurrence: US)
  Receive Date: 20241224
  Receipt Date: 20241224
  Transmission Date: 20250115
  Serious: Yes (Death, Other)
  Sender: ALEXION PHARMACEUTICALS
  Company Number: US-AstraZeneca-CH-00772577A

PATIENT
  Age: 74 Year

DRUGS (4)
  1. SODIUM ZIRCONIUM CYCLOSILICATE [Suspect]
     Active Substance: SODIUM ZIRCONIUM CYCLOSILICATE
     Route: 065
  2. SODIUM ZIRCONIUM CYCLOSILICATE [Suspect]
     Active Substance: SODIUM ZIRCONIUM CYCLOSILICATE
     Route: 065
  3. SODIUM ZIRCONIUM CYCLOSILICATE [Suspect]
     Active Substance: SODIUM ZIRCONIUM CYCLOSILICATE
     Route: 065
  4. SODIUM ZIRCONIUM CYCLOSILICATE [Suspect]
     Active Substance: SODIUM ZIRCONIUM CYCLOSILICATE
     Route: 065

REACTIONS (1)
  - Death [Fatal]
